FAERS Safety Report 20610025 (Version 2)
Quarter: 2025Q2

REPORT INFORMATION
  Report Type: Spontaneous
  Country: US (occurrence: US)
  Receive Date: 20220318
  Receipt Date: 20250609
  Transmission Date: 20250717
  Serious: Yes (Other)
  Sender: AUROBINDO
  Company Number: US-ROCHE-2566053

PATIENT
  Age: 48 Year
  Sex: Male

DRUGS (6)
  1. RIBAVIRIN [Suspect]
     Active Substance: RIBAVIRIN
     Indication: Chronic hepatitis C
     Route: 065
  2. SOFOSBUVIR [Suspect]
     Active Substance: SOFOSBUVIR
     Indication: Chronic hepatitis C
     Route: 065
     Dates: start: 201409
  3. EMTRICITABINE [Concomitant]
     Active Substance: EMTRICITABINE
     Indication: Chronic hepatitis C
     Route: 065
  4. TENOFOVIR DISOPROXIL [Concomitant]
     Active Substance: TENOFOVIR DISOPROXIL
     Indication: Chronic hepatitis C
     Route: 065
  5. RALTEGRAVIR [Concomitant]
     Active Substance: RALTEGRAVIR
     Indication: Chronic hepatitis C
     Route: 065
  6. BOSENTAN [Concomitant]
     Active Substance: BOSENTAN
     Indication: Pulmonary arterial hypertension
     Route: 065

REACTIONS (1)
  - Pulmonary arterial hypertension [Unknown]
